FAERS Safety Report 15666067 (Version 1)
Quarter: 2018Q4

REPORT INFORMATION
  Report Type: Spontaneous
  Country: DK (occurrence: DK)
  Receive Date: 20181128
  Receipt Date: 20181128
  Transmission Date: 20190205
  Serious: Yes (Disabling)
  Sender: FDA-Public Use
  Company Number: PHHY2018DK166943

PATIENT
  Age: 41 Year
  Sex: Female

DRUGS (1)
  1. METHOTREXATE. [Suspect]
     Active Substance: METHOTREXATE
     Indication: SKIN DISORDER
     Dosage: 1 DF, QW (6-7 TABLETS, ONE TIME EVERY WEEK)
     Route: 048

REACTIONS (4)
  - Eczema [Not Recovered/Not Resolved]
  - Inflammation [Not Recovered/Not Resolved]
  - Rash erythematous [Not Recovered/Not Resolved]
  - Pruritus [Not Recovered/Not Resolved]

NARRATIVE: CASE EVENT DATE: 2017
